FAERS Safety Report 5928830-5 (Version None)
Quarter: 2008Q4

REPORT INFORMATION
  Report Type: 
  Country: None (occurrence: None)
  Receive Date: 20081020
  Receipt Date: 20081003
  Transmission Date: 20090506
  Serious: Yes (Other)
  Sender: FDA-Public Use
  Company Number: 1-16712413

PATIENT
  Age: 31 Year
  Sex: Female

DRUGS (2)
  1. MINOCYCLINE HCL [Suspect]
     Indication: ACNE
     Dosage: 50 MG BID ORAL
     Route: 048
  2. IODINE-CONTAINING MULTIVITAMIN [Concomitant]

REACTIONS (5)
  - HYPERTHYROIDISM [None]
  - INFARCTION [None]
  - THYROID CANCER [None]
  - THYROID DISORDER [None]
  - THYROIDITIS [None]
